FAERS Safety Report 9562853 (Version 1)
Quarter: 2013Q3

REPORT INFORMATION
  Report Type: Spontaneous
  Country: US (occurrence: US)
  Receive Date: 20130927
  Receipt Date: 20130927
  Transmission Date: 20140515
  Serious: Yes (Other)
  Sender: FDA-Public Use
  Company Number: PHHY2013US092703

PATIENT
  Age: 88 Year
  Sex: Male

DRUGS (3)
  1. ROPINIROLE [Suspect]
  2. LEVODOPA [Suspect]
  3. RASAGILINE [Suspect]

REACTIONS (3)
  - Paradoxical drug reaction [Recovered/Resolved]
  - Gait disturbance [Recovered/Resolved]
  - Freezing phenomenon [Recovered/Resolved]
